FAERS Safety Report 7646037-0 (Version None)
Quarter: 2011Q3

REPORT INFORMATION
  Report Type: 
  Country: None (occurrence: None)
  Receive Date: 20110801
  Receipt Date: 20110727
  Transmission Date: 20111222
  Serious: Yes (Other)
  Sender: FDA-Public Use
  Company Number: ES-BRISTOL-MYERS SQUIBB COMPANY-15915184

PATIENT
  Age: 62 Year
  Sex: Male

DRUGS (4)
  1. METFORMIN HCL [Concomitant]
  2. ONGLYZA [Suspect]
     Dates: start: 20110520
  3. INSULIN [Concomitant]
     Dosage: 20 IU IN THE MORNINGS AND 12 IU AT NIGHT
  4. GEMFIBROZIL [Suspect]

REACTIONS (2)
  - CHOLESTASIS [None]
  - OCULAR ICTERUS [None]
